FAERS Safety Report 25539193 (Version 1)
Quarter: 2025Q3

REPORT INFORMATION
  Report Type: Spontaneous
  Country: US (occurrence: US)
  Receive Date: 20250710
  Receipt Date: 20250710
  Transmission Date: 20251020
  Serious: No
  Sender: ELI LILLY AND COMPANY
  Company Number: US-ELI_LILLY_AND_COMPANY-US202507006726

PATIENT
  Sex: Female

DRUGS (2)
  1. MOUNJARO [Suspect]
     Active Substance: TIRZEPATIDE
     Indication: Diabetes mellitus
     Route: 058
     Dates: start: 2023
  2. ASPIRIN [Suspect]
     Active Substance: ASPIRIN
     Indication: Product used for unknown indication
     Dosage: UNK UNK, DAILY
     Route: 065

REACTIONS (2)
  - Injection site pain [Unknown]
  - Injection site bruising [Unknown]
